FAERS Safety Report 20335560 (Version 1)
Quarter: 2022Q1

REPORT INFORMATION
  Report Type: Spontaneous
  Country: US (occurrence: US)
  Receive Date: 20220114
  Receipt Date: 20220114
  Transmission Date: 20220423
  Serious: No
  Sender: FDA-Public Use
  Company Number: US-GLAXOSMITHKLINE-US2022AMR005662

PATIENT
  Sex: Female
  Weight: 54.43 kg

DRUGS (1)
  1. BUPROPION [Suspect]
     Active Substance: BUPROPION
     Indication: Depression
     Dosage: 1 DF, QD, 60 COUNT

REACTIONS (3)
  - Intentional product misuse [Unknown]
  - Incorrect dose administered [Unknown]
  - Drug ineffective [Unknown]
